FAERS Safety Report 6276513-7 (Version None)
Quarter: 2009Q3

REPORT INFORMATION
  Report Type: 
  Country: None (occurrence: None)
  Receive Date: 20090720
  Receipt Date: 20090128
  Transmission Date: 20100115
  Serious: Yes (Other)
  Sender: FDA-Public Use
  Company Number: USA-2009-0036775

PATIENT
  Sex: Female

DRUGS (1)
  1. MS CONTIN [Suspect]
     Indication: DRUG USE FOR UNKNOWN INDICATION
     Dosage: 15 MG, Q12H

REACTIONS (4)
  - INADEQUATE ANALGESIA [None]
  - OEDEMA PERIPHERAL [None]
  - OVERDOSE [None]
  - RESPIRATORY DEPRESSION [None]
